FAERS Safety Report 10576302 (Version 1)
Quarter: 2014Q4

REPORT INFORMATION
  Report Type: Spontaneous
  Country: US (occurrence: None)
  Receive Date: 20141110
  Receipt Date: 20141110
  Transmission Date: 20150529
  Serious: Yes (Hospitalization)
  Sender: FDA-Public Use
  Company Number: None

PATIENT
  Age: 88 Year
  Sex: Male
  Weight: 84.6 kg

DRUGS (1)
  1. WARFARIN [Suspect]
     Active Substance: WARFARIN
     Indication: DEEP VEIN THROMBOSIS
     Dosage: MG, PO
     Route: 048
     Dates: start: 20140828

REACTIONS (4)
  - Coagulopathy [None]
  - Acute kidney injury [None]
  - Hyperkalaemia [None]
  - International normalised ratio abnormal [None]

NARRATIVE: CASE EVENT DATE: 20141027
